FAERS Safety Report 8422972 (Version 2)
Quarter: 2012Q4

REPORT INFORMATION
  Report Type: Report from Study
  Country: JP (occurrence: JP)
  Receive Date: 20120223
  Receipt Date: 20121002
  Transmission Date: 20130627
  Serious: Yes (Other)
  Sender: FDA-Public Use
  Company Number: JP-GILEAD-2012-0051262

PATIENT
  Age: 67 Year
  Sex: Female

DRUGS (5)
  1. AMBRISENTAN [Suspect]
     Indication: COLLAGEN DISORDER
     Dosage: 2.5 mg, QD
     Route: 048
     Dates: start: 20111226, end: 20120123
  2. REVATIO [Concomitant]
     Indication: COLLAGEN DISORDER
     Route: 048
  3. BERASUS [Concomitant]
     Indication: COLLAGEN DISORDER
     Route: 048
  4. TOCOPHEROL [Concomitant]
     Route: 048
  5. LANSOPRAZOLE [Concomitant]
     Route: 048

REACTIONS (1)
  - Melaena [Recovered/Resolved]
